FAERS Safety Report 4666841-0 (Version None)
Quarter: 2005Q2

REPORT INFORMATION
  Report Type: 
  Country: None (occurrence: None)
  Receive Date: 20050519
  Receipt Date: 20050218
  Transmission Date: 20051028
  Serious: Yes (Hospitalization, Disabling)
  Sender: FDA-Public Use
  Company Number: US-MERCK-0502USA02890

PATIENT
  Age: 70 Year
  Sex: Female
  Weight: 73 kg

DRUGS (18)
  1. VIOXX [Suspect]
     Indication: ARTHRITIS
     Route: 048
     Dates: start: 20001009, end: 20041101
  2. VIOXX [Suspect]
     Indication: OSTEOARTHRITIS
     Route: 048
     Dates: start: 20001009, end: 20041101
  3. PROTONIX [Concomitant]
     Route: 065
  4. [THERAPY UNSPECIFIED] [Concomitant]
     Indication: HORMONE LEVEL ABNORMAL
     Route: 065
  5. MICARDIS [Concomitant]
     Indication: CARDIAC DISORDER
     Route: 065
     Dates: start: 20020301, end: 20041210
  6. ZETIA [Concomitant]
     Indication: BLOOD CHOLESTEROL INCREASED
     Route: 048
  7. LIPITOR [Concomitant]
     Indication: BLOOD CHOLESTEROL INCREASED
     Route: 065
     Dates: start: 20020210
  8. DITROPAN [Concomitant]
     Indication: BLADDER DISORDER
     Route: 065
  9. PLAVIX [Concomitant]
     Indication: ANTICOAGULANT THERAPY
     Route: 065
     Dates: start: 20030501
  10. LOPRESSOR [Concomitant]
     Indication: BLOOD PRESSURE ABNORMAL
     Route: 065
     Dates: start: 20040201
  11. NORVASC [Concomitant]
     Indication: BLOOD PRESSURE ABNORMAL
     Route: 065
     Dates: start: 20020501
  12. NORVASC [Concomitant]
     Indication: CARDIAC DISORDER
     Route: 065
     Dates: start: 20020501
  13. ASPIRIN [Concomitant]
     Indication: CARDIAC DISORDER
     Route: 065
     Dates: start: 20020301
  14. ASPIRIN [Concomitant]
     Indication: ANTICOAGULANT THERAPY
     Route: 065
     Dates: start: 20020301
  15. TYLENOL (CAPLET) [Concomitant]
     Indication: PAIN
     Route: 065
  16. IMDUR [Concomitant]
     Indication: ANGINA PECTORIS
     Route: 065
  17. IBUPROFEN [Concomitant]
     Route: 065
     Dates: start: 20031101
  18. CELEBREX [Concomitant]
     Route: 065
     Dates: start: 20030201, end: 20030401

REACTIONS (20)
  - ANGINA PECTORIS [None]
  - AORTIC VALVE INCOMPETENCE [None]
  - ARTERIAL THROMBOSIS [None]
  - ATHEROSCLEROSIS [None]
  - BLADDER DISORDER [None]
  - BLOOD CHOLESTEROL INCREASED [None]
  - BLOOD TRIGLYCERIDES INCREASED [None]
  - CARDIAC VALVE DISEASE [None]
  - CARDIOVASCULAR DISORDER [None]
  - CORONARY ARTERY DISEASE [None]
  - DEEP VEIN THROMBOSIS [None]
  - EMOTIONAL DISTRESS [None]
  - HYPERTENSION [None]
  - INTRACARDIAC THROMBUS [None]
  - MITRAL VALVE PROLAPSE [None]
  - MYOCARDIAL INFARCTION [None]
  - PAIN [None]
  - POSTOPERATIVE INFECTION [None]
  - PULMONARY HYPERTENSION [None]
  - TRANSIENT ISCHAEMIC ATTACK [None]
